FAERS Safety Report 20333240 (Version 1)
Quarter: 2022Q1

REPORT INFORMATION
  Report Type: Spontaneous
  Country: US (occurrence: None)
  Receive Date: 20220113
  Receipt Date: 20220113
  Transmission Date: 20220423
  Serious: Yes (Death)
  Sender: FDA-Public Use
  Company Number: None

PATIENT
  Sex: Male

DRUGS (2)
  1. TECENTRIQ [Suspect]
     Active Substance: ATEZOLIZUMAB
     Indication: Bladder cancer
     Dosage: 1200MG/20ML INTRAVENOUS??MD TO INFUSE 1200 MG INTRAVENOUSLY EVERY 21 DAYS
     Route: 042
     Dates: start: 20210921
  2. TECENTRIQ [Suspect]
     Active Substance: ATEZOLIZUMAB
     Dosage: OTHER FREQUENCY : EVERY 21 DAYS;?
     Route: 042

REACTIONS (1)
  - Death [None]
